FAERS Safety Report 23800012 (Version 1)
Quarter: 2024Q2

REPORT INFORMATION
  Report Type: Spontaneous
  Country: GB (occurrence: GB)
  Receive Date: 20240430
  Receipt Date: 20240430
  Transmission Date: 20240716
  Serious: Yes (Other)
  Sender: FDA-Public Use
  Company Number: None

PATIENT
  Age: 80 Year
  Sex: Female

DRUGS (22)
  1. PREDNISOLONE [Suspect]
     Active Substance: PREDNISOLONE
     Dosage: STARTED ON 21/02
     Route: 065
  2. MICONAZOLE [Concomitant]
     Active Substance: MICONAZOLE
  3. CARBOCYSTEINE [Concomitant]
     Active Substance: CARBOCYSTEINE
     Dosage: TIME INTERVAL: 0.33333333 DAYS: 750MG IN 10ML ORAL SOLUTION 375MG THREE TIMES A DAY
     Route: 048
  4. CLOPIDOGREL [Concomitant]
     Active Substance: CLOPIDOGREL BISULFATE
     Dosage: EVERY MORNING
  5. ATORVASTATIN [Concomitant]
     Active Substance: ATORVASTATIN
     Dosage: EVERY NIGHT
  6. CINACALCET [Concomitant]
     Active Substance: CINACALCET
     Dosage: EVERY ALTERNATE MORNING
  7. NITROGLYCERIN [Concomitant]
     Active Substance: NITROGLYCERIN
     Dosage: TIME INTERVAL: AS NECESSARY: SPRAY 1 PUFF PRN
  8. LANSOPRAZOLE [Concomitant]
     Active Substance: LANSOPRAZOLE
  9. SODIUM BICARBONATE [Concomitant]
     Active Substance: SODIUM BICARBONATE
     Dosage: TIME INTERVAL: 0.33333333 DAYS
  10. ACETAMINOPHEN [Concomitant]
     Active Substance: ACETAMINOPHEN
     Dosage: TIME INTERVAL: AS NECESSARY: 500MG SOLUBLE TABLETS 2 TABLETS 4 TIME A DAY PRN
  11. BISOPROLOL [Concomitant]
     Active Substance: BISOPROLOL\BISOPROLOL FUMARATE
     Dosage: EVERY NIGHT
  12. LEVOTHYROXINE [Concomitant]
     Active Substance: LEVOTHYROXINE\LEVOTHYROXINE SODIUM
     Dosage: 100/50/25 MCG ONCE EVERY MORNING
  13. ALBUTEROL [Concomitant]
     Active Substance: ALBUTEROL
     Dosage: 100 MICROGRAMS/DOSE INHALER
     Route: 055
  14. ASPIRIN [Concomitant]
     Active Substance: ASPIRIN
     Dosage: EVERY MORNING
  15. ASCORBIC ACID\BIOTIN\CALCIUM PANTOTHENATE\CYANOCOBALAMIN\FOLIC ACID\NI [Concomitant]
     Active Substance: ASCORBIC ACID\BIOTIN\CALCIUM PANTOTHENATE\CYANOCOBALAMIN\FOLIC ACID\NIACINAMIDE\PYRIDOXINE HYDROCHLO
     Dosage: EVERY MORNING
  16. HYDROCORTISONE\MICONAZOLE NITRATE [Concomitant]
     Active Substance: HYDROCORTISONE\MICONAZOLE NITRATE
  17. SEVELAMER [Concomitant]
     Active Substance: SEVELAMER
     Dosage: EVERY TEATIME
  18. TOUJEO [Concomitant]
     Active Substance: INSULIN GLARGINE
     Dosage: 300UNITS/ML SOLOSTAR PEN 4 UNITS AT 5PM
  19. BECLOMETHASONE\FORMOTEROL [Concomitant]
     Active Substance: BECLOMETHASONE\FORMOTEROL
     Dosage: 100/6 MCG INHALER
     Route: 055
  20. OXYCODONE [Concomitant]
     Active Substance: OXYCODONE\OXYCODONE HYDROCHLORIDE
     Dosage: TIME INTERVAL: AS NECESSARY: 5MG IN 5ML ORAL SOLUTION 5MG EVERY 4 HOURS PRN
  21. PREGABALIN [Concomitant]
     Active Substance: PREGABALIN
     Dosage: AT NIGHT
  22. ALFACALCIDOL [Concomitant]
     Active Substance: ALFACALCIDOL
     Dosage: EVERY MORNING
     Route: 048

REACTIONS (1)
  - Hyperglycaemia [Recovered/Resolved]
